FAERS Safety Report 6649517-X (Version None)
Quarter: 2010Q1

REPORT INFORMATION
  Report Type: 
  Country: None (occurrence: None)
  Receive Date: 20100324
  Receipt Date: 20100324
  Transmission Date: 20100710
  Serious: Yes (Disabling, Other)
  Sender: FDA-Public Use
  Company Number: None

PATIENT
  Age: 61 Year
  Sex: Female
  Weight: 64.4108 kg

DRUGS (2)
  1. ACTONEL [Suspect]
     Indication: OSTEOPENIA
     Dosage: 150 MG ONCE A MONTH PO
     Route: 048
     Dates: start: 20090830, end: 20091130
  2. ACTONEL [Suspect]
     Indication: OSTEOPOROSIS
     Dosage: 150 MG ONCE A MONTH PO
     Route: 048
     Dates: start: 20090830, end: 20091130

REACTIONS (10)
  - ACTIVITIES OF DAILY LIVING IMPAIRED [None]
  - ARTHRALGIA [None]
  - ARTHRITIS [None]
  - BONE PAIN [None]
  - DIARRHOEA [None]
  - HEADACHE [None]
  - INFLUENZA LIKE ILLNESS [None]
  - INSOMNIA [None]
  - PAIN [None]
  - PRODUCT QUALITY ISSUE [None]
